FAERS Safety Report 4354771-3 (Version None)
Quarter: 2004Q2

REPORT INFORMATION
  Report Type: 
  Country: None (occurrence: None)
  Receive Date: 20040507
  Receipt Date: 20040402
  Transmission Date: 20050107
  Serious: Yes (Death, Other)
  Sender: FDA-Public Use
  Company Number: BE-BRISTOL-MYERS SQUIBB COMPANY-12549697

PATIENT
  Age: 85 Year
  Sex: Female
  Weight: 90 kg

DRUGS (13)
  1. CEFEPIME FOR INJ [Suspect]
     Indication: LUNG INFECTION
     Dosage: DOSE DECREASED TO 1G THREE TIMES DAILY ON 17-MAR-2004.
     Route: 042
     Dates: start: 20040311, end: 20040324
  2. CEFEPIME FOR INJ [Suspect]
     Indication: PNEUMONIA ASPIRATION
     Dosage: DOSE DECREASED TO 1G THREE TIMES DAILY ON 17-MAR-2004.
     Route: 042
     Dates: start: 20040311, end: 20040324
  3. ACTRAPID [Concomitant]
  4. ALDACTONE [Concomitant]
  5. CARDIOASPIRIN [Concomitant]
  6. CATAPRES [Concomitant]
     Route: 042
  7. ENOXAPARIN SODIUM [Concomitant]
     Route: 058
  8. PERFUSALGAN IV [Concomitant]
     Route: 042
  9. DIFLUCAN [Concomitant]
  10. KABIVEN [Concomitant]
  11. LOGASTRIC [Concomitant]
  12. MOTILIUM [Concomitant]
     Dosage: SYRUP
  13. MOVICOL [Concomitant]

REACTIONS (4)
  - COMA [None]
  - EPILEPSY [None]
  - LUNG INFECTION [None]
  - MYOCLONUS [None]
